FAERS Safety Report 10245229 (Version 2)
Quarter: 2014Q3

REPORT INFORMATION
  Report Type: Spontaneous
  Country: US (occurrence: US)
  Receive Date: 20140618
  Receipt Date: 20140702
  Transmission Date: 20150326
  Serious: No
  Sender: FDA-Public Use
  Company Number: US-009507513-1406USA006389

PATIENT
  Age: 54 Year
  Sex: Female
  Weight: 64.85 kg

DRUGS (8)
  1. CENTRUM (MINERALS (UNSPECIFIED) (+) VITAMINS (UNSPECIFIED)) [Concomitant]
     Route: 048
  2. MOTRIN [Concomitant]
     Active Substance: IBUPROFEN
     Route: 048
  3. SOVALDI [Concomitant]
     Active Substance: SOFOSBUVIR
     Route: 048
  4. CELEXA [Concomitant]
     Active Substance: CITALOPRAM HYDROBROMIDE
     Route: 048
  5. PEGINTRON [Suspect]
     Active Substance: PEGINTERFERON ALFA-2B
     Dosage: DOSE: 120MCG/0.5ML, INJECT 84MCG (0.35ML) ONCE PER WEEK
     Route: 058
  6. PHENERGAN [Concomitant]
     Active Substance: PROMETHAZINE HYDROCHLORIDE
     Route: 048
  7. VISTARIL [Concomitant]
     Active Substance: HYDROXYZINE PAMOATE
     Route: 048
  8. PROTONIX [Concomitant]
     Active Substance: PANTOPRAZOLE SODIUM
     Route: 048

REACTIONS (3)
  - Rash [Unknown]
  - Nausea [Unknown]
  - Influenza like illness [Unknown]

NARRATIVE: CASE EVENT DATE: 20140502
